FAERS Safety Report 24604809 (Version 1)
Quarter: 2024Q4

REPORT INFORMATION
  Report Type: Spontaneous
  Country: US (occurrence: US)
  Receive Date: 20241111
  Receipt Date: 20241111
  Transmission Date: 20250114
  Serious: No
  Sender: PFIZER
  Company Number: US-PFIZER INC-202400296402

PATIENT
  Age: 19 Year
  Sex: Female

DRUGS (2)
  1. CIBINQO [Suspect]
     Active Substance: ABROCITINIB
     Indication: Dermatitis atopic
     Dosage: CIBINQO 100 MG TABLET 1 TABLET BY MOUTH ONCE A DAY
     Route: 048
     Dates: start: 20241010
  2. CIBINQO [Suspect]
     Active Substance: ABROCITINIB
     Dosage: CIBINQO 50 MG TABLET TAKE 1 TABLET ALONG WITH 100MG TABLET TO=150MG DAILY
     Route: 048
     Dates: start: 20241014

REACTIONS (3)
  - Dermatitis atopic [Unknown]
  - Condition aggravated [Unknown]
  - Drug ineffective [Unknown]

NARRATIVE: CASE EVENT DATE: 20240101
